FAERS Safety Report 4715035-9 (Version None)
Quarter: 2005Q3

REPORT INFORMATION
  Report Type: 
  Country: None (occurrence: None)
  Receive Date: 20050715
  Receipt Date: 20050707
  Transmission Date: 20060218
  Serious: Yes (Death)
  Sender: FDA-Public Use
  Company Number: US-JNJFOC-20050500365

PATIENT
  Sex: Female
  Weight: 122.47 kg

DRUGS (4)
  1. RISPERDAL [Suspect]
     Route: 048
  2. TRAZODONE [Concomitant]
  3. CLONAZEPAM [Concomitant]
     Dosage: AS NEEDED
  4. BENZTROPINE [Concomitant]

REACTIONS (1)
  - MYOCARDIAL INFARCTION [None]
